FAERS Safety Report 4300899-3 (Version None)
Quarter: 2004Q1

REPORT INFORMATION
  Report Type: 
  Country: None (occurrence: None)
  Receive Date: 20040220
  Receipt Date: 20030627
  Transmission Date: 20041129
  Serious: Yes (Hospitalization, Disabling)
  Sender: FDA-Public Use
  Company Number: WAES 0306USA03352

PATIENT
  Age: 47 Year
  Sex: Male
  Weight: 82 kg

DRUGS (13)
  1. VICODIN [Concomitant]
     Dates: start: 20000713, end: 20010616
  2. ANALGESIC OR ANESTHETIC (UNSPECIFIED) [Concomitant]
     Dates: start: 19980101, end: 20010101
  3. ASPIRIN [Suspect]
     Dates: start: 20010601
  4. LIPITOR [Concomitant]
     Dates: start: 20010601
  5. CELEBREX [Concomitant]
  6. PLAVIX [Suspect]
     Dates: start: 20010601, end: 20020701
  7. MONOPRIL [Concomitant]
     Dates: start: 20010101
  8. HEPARIN [Suspect]
     Indication: MYOCARDIAL INFARCTION
     Route: 042
     Dates: start: 20010617
  9. METOPROLOL [Concomitant]
     Dates: start: 20010601, end: 20010701
  10. NIACIN [Concomitant]
     Dates: start: 20020101, end: 20030901
  11. VIOXX [Suspect]
     Indication: PAIN IN EXTREMITY
     Route: 048
     Dates: start: 20000801, end: 20010616
  12. VIOXX [Suspect]
     Indication: BACK PAIN
     Route: 048
     Dates: start: 20000801, end: 20010616
  13. ZOLOFT [Concomitant]
     Dates: start: 20010601, end: 20010701

REACTIONS (30)
  - ADJUSTMENT DISORDER [None]
  - ANGINA PECTORIS [None]
  - ANXIETY [None]
  - ASPIRATION [None]
  - ASTHENIA [None]
  - ATHEROSCLEROSIS [None]
  - ATRIAL FIBRILLATION [None]
  - BLOOD CHOLESTEROL INCREASED [None]
  - BLOOD TRIGLYCERIDES INCREASED [None]
  - CARDIAC ARREST [None]
  - CARDIO-RESPIRATORY ARREST [None]
  - CHEST DISCOMFORT [None]
  - COMA [None]
  - CORONARY ARTERY DISEASE [None]
  - CORONARY ARTERY STENOSIS [None]
  - CRYING [None]
  - DEPRESSION [None]
  - DYSPNOEA [None]
  - EJECTION FRACTION DECREASED [None]
  - EMOTIONAL DISTRESS [None]
  - GASTRITIS [None]
  - HAEMATEMESIS [None]
  - HEADACHE [None]
  - HYPERHIDROSIS [None]
  - HYPERTENSION [None]
  - LETHARGY [None]
  - MYOCARDIAL INFARCTION [None]
  - STRESS SYMPTOMS [None]
  - UPPER GASTROINTESTINAL HAEMORRHAGE [None]
  - VENTRICULAR FIBRILLATION [None]
